FAERS Safety Report 7865705-9 (Version None)
Quarter: 2011Q4

REPORT INFORMATION
  Report Type: 
  Country: None (occurrence: None)
  Receive Date: 20111028
  Receipt Date: 20110211
  Transmission Date: 20120403
  Serious: No
  Sender: FDA-Public Use
  Company Number: US-GLAXOSMITHKLINE-A0913141A

PATIENT
  Age: 65 Year
  Sex: Female

DRUGS (4)
  1. ZETIA [Concomitant]
  2. IBUPROFEN (ADVIL) [Concomitant]
  3. ADVAIR DISKUS 100/50 [Suspect]
     Indication: COUGH
     Dosage: 1PUFF PER DAY
     Route: 055
     Dates: start: 20101214, end: 20110101
  4. PRAVASTATIN [Concomitant]

REACTIONS (7)
  - AGEUSIA [None]
  - DRUG INEFFECTIVE [None]
  - MOUTH ULCERATION [None]
  - OEDEMA MOUTH [None]
  - CANDIDIASIS [None]
  - DROOLING [None]
  - LIP EXFOLIATION [None]
